FAERS Safety Report 9613496 (Version 1)
Quarter: 2013Q4

REPORT INFORMATION
  Report Type: Spontaneous
  Country: US (occurrence: US)
  Receive Date: 20131010
  Receipt Date: 20131010
  Transmission Date: 20140711
  Serious: Yes (Other)
  Sender: FDA-Public Use
  Company Number: CHPA2013US015373

PATIENT
  Age: 82 Year
  Sex: Female

DRUGS (4)
  1. MAALOX ANTACID/ANTIGAS MAX QDTABS ASST [Suspect]
     Indication: ABDOMINAL DISCOMFORT
     Dosage: UNK, UNK
     Route: 048
  2. MAALOX ANTACID/ANTIGAS MAX QDTABS ASST [Suspect]
     Indication: FLATULENCE
  3. MAALOX ANTACID/ANTIGAS MAX QDTABS ASST [Suspect]
     Indication: IRRITABLE BOWEL SYNDROME
  4. MAALOX ANTACID/ANTIGAS MAX QDTABS ASST [Suspect]
     Indication: OFF LABEL USE

REACTIONS (2)
  - Hiatus hernia [Unknown]
  - Gastrooesophageal reflux disease [Unknown]
